FAERS Safety Report 6758619-9 (Version None)
Quarter: 2010Q2

REPORT INFORMATION
  Report Type: 
  Country: None (occurrence: None)
  Receive Date: 20100607
  Receipt Date: 20100528
  Transmission Date: 20101027
  Serious: Yes (Other)
  Sender: FDA-Public Use
  Company Number: CA-ROCHE-706642

PATIENT
  Sex: Female

DRUGS (3)
  1. BEVACIZUMAB [Suspect]
     Indication: GLIOBLASTOMA
     Route: 042
     Dates: start: 20100513
  2. LIPITOR [Concomitant]
  3. CIPRALEX [Concomitant]

REACTIONS (3)
  - APHASIA [None]
  - DIZZINESS [None]
  - DYSARTHRIA [None]
